FAERS Safety Report 5446426-9 (Version None)
Quarter: 2007Q3

REPORT INFORMATION
  Report Type: 
  Country: None (occurrence: None)
  Receive Date: 20070907
  Receipt Date: 20070830
  Transmission Date: 20080115
  Serious: Yes (Hospitalization, Other)
  Sender: FDA-Public Use
  Company Number: AU-ASTRAZENECA-2007AP05416

PATIENT
  Age: 704 Month
  Sex: Female

DRUGS (2)
  1. ARIMIDEX [Suspect]
     Indication: BREAST CANCER
     Route: 048
     Dates: start: 20051201
  2. FISH OIL [Concomitant]

REACTIONS (4)
  - ARTHRALGIA [None]
  - ATRIAL FIBRILLATION [None]
  - HOT FLUSH [None]
  - WEIGHT INCREASED [None]
